FAERS Safety Report 7736797-2 (Version None)
Quarter: 2011Q3

REPORT INFORMATION
  Report Type: 
  Country: None (occurrence: None)
  Receive Date: 20110908
  Receipt Date: 20110906
  Transmission Date: 20111222
  Serious: Yes (Death, Hospitalization)
  Sender: FDA-Public Use
  Company Number: PHHY2011AU67516

PATIENT
  Sex: Male

DRUGS (2)
  1. CLOZAPINE [Suspect]
     Dosage: 250 MG,
     Dates: start: 20091207
  2. CLOZAPINE [Suspect]
     Dosage: 225 MG,

REACTIONS (6)
  - LOSS OF CONSCIOUSNESS [None]
  - FALL [None]
  - WHITE BLOOD CELL COUNT INCREASED [None]
  - DEATH [None]
  - NEUTROPHIL COUNT INCREASED [None]
  - PNEUMONIA [None]
